FAERS Safety Report 9790563 (Version 1)
Quarter: 2013Q4

REPORT INFORMATION
  Report Type: Spontaneous
  Country: ES (occurrence: ES)
  Receive Date: 20131231
  Receipt Date: 20131231
  Transmission Date: 20140711
  Serious: Yes (Death, Hospitalization)
  Sender: FDA-Public Use
  Company Number: ES-B.I. PHARMACEUTICALS,INC./RIDGEFIELD-2013-BI-44054ES

PATIENT
  Age: 87 Year
  Sex: Female

DRUGS (8)
  1. PRADAXA [Suspect]
     Dosage: 220 MG
     Route: 048
     Dates: start: 20131116, end: 20131126
  2. ZYLORIC [Suspect]
     Indication: HYPERURICAEMIA
     Dosage: 300 MG
     Route: 048
     Dates: start: 201310, end: 20131126
  3. LORMETAZEPAM [Concomitant]
     Route: 048
     Dates: end: 20131211
  4. ESPIRONOLACTONA [Concomitant]
     Route: 048
     Dates: end: 20131211
  5. DEPRAX 100 MG [Concomitant]
     Dosage: 50 MG
     Route: 048
     Dates: end: 20131211
  6. DUPHALAC ORAL SOLUTION SACHETS [Concomitant]
     Dosage: 30 G
     Route: 048
     Dates: end: 20131211
  7. LANIRAPID [Concomitant]
     Route: 058
     Dates: end: 20131211
  8. SEGURIL 40 MG [Concomitant]
     Dosage: 60 MG
     Route: 048
     Dates: end: 20131211

REACTIONS (2)
  - Streptococcal bacteraemia [Fatal]
  - Agranulocytosis [Recovered/Resolved]
